FAERS Safety Report 13554444 (Version 4)
Quarter: 2017Q3

REPORT INFORMATION
  Report Type: Report from Study
  Country: ES (occurrence: ES)
  Receive Date: 20170517
  Receipt Date: 20170725
  Transmission Date: 20171127
  Serious: Yes (Death, Life-Threatening, Hospitalization)
  Sender: FDA-Public Use
  Company Number: ES-ROCHE-1934858

PATIENT
  Age: 84 Year
  Sex: Male
  Weight: 75 kg

DRUGS (21)
  1. NITRO-DUR [Concomitant]
     Active Substance: NITROGLYCERIN
     Indication: MYOCARDIAL ISCHAEMIA
     Route: 062
  2. HEMOVAS [Concomitant]
     Indication: INTERMITTENT CLAUDICATION
     Route: 048
  3. NOLOTIL [Concomitant]
     Active Substance: METAMIZOLE
     Indication: SCIATICA
     Route: 048
     Dates: start: 20170322
  4. ATEZOLIZUMAB. [Suspect]
     Active Substance: ATEZOLIZUMAB
     Indication: TRANSITIONAL CELL CARCINOMA
     Dosage: THE MOST RECENT DOSE OF ATEZOLIZUMAB ON 18/APR/2017 PRIOR TO ACUTE CORONARY SYNDROME (FIRST EPISODE)
     Route: 042
     Dates: start: 20170328
  5. ALDACTONE [Concomitant]
     Active Substance: SPIRONOLACTONE
     Indication: HYPERTENSION
     Route: 048
     Dates: start: 20170317
  6. ENTRESTO [Concomitant]
     Active Substance: SACUBITRIL\VALSARTAN
     Indication: MYOCARDIAL ISCHAEMIA
     Route: 048
  7. SEGURIL [Concomitant]
     Active Substance: FUROSEMIDE
     Indication: HYPERTENSION
     Route: 048
  8. OMEPRAZOL [Concomitant]
     Active Substance: OMEPRAZOLE
     Indication: PROPHYLAXIS
     Route: 048
  9. ADIRO [Concomitant]
     Active Substance: ASPIRIN
     Indication: MYOCARDIAL ISCHAEMIA
     Route: 048
  10. PARACETAMOL [Concomitant]
     Active Substance: ACETAMINOPHEN
     Indication: SCIATICA
     Route: 048
     Dates: start: 20170322
  11. AMLODIPINE [Concomitant]
     Active Substance: AMLODIPINE BESYLATE
     Indication: MYOCARDIAL ISCHAEMIA
     Route: 048
  12. NITROGLYCERIN. [Concomitant]
     Active Substance: NITROGLYCERIN
     Indication: MYOCARDIAL ISCHAEMIA
     Route: 062
  13. BISOPROLOL [Concomitant]
     Active Substance: BISOPROLOL
     Indication: MYOCARDIAL ISCHAEMIA
     Route: 048
  14. BISOPROLOL [Concomitant]
     Active Substance: BISOPROLOL
     Route: 048
  15. HEMOVAS [Concomitant]
     Route: 048
  16. ATORVASTATINE [Concomitant]
     Active Substance: ATORVASTATIN
     Indication: DYSLIPIDAEMIA
     Route: 048
  17. ATORVASTATINE [Concomitant]
     Active Substance: ATORVASTATIN
     Route: 048
  18. ALLOPURINOL. [Concomitant]
     Active Substance: ALLOPURINOL
     Route: 048
  19. RANEXA [Concomitant]
     Active Substance: RANOLAZINE
     Indication: MYOCARDIAL ISCHAEMIA
     Route: 047
  20. NOLOTIL [Concomitant]
     Active Substance: METAMIZOLE
     Route: 048
  21. LYRICA [Concomitant]
     Active Substance: PREGABALIN
     Indication: SCIATICA
     Route: 048

REACTIONS (2)
  - Acute pulmonary oedema [Recovered/Resolved]
  - Acute coronary syndrome [Fatal]

NARRATIVE: CASE EVENT DATE: 20170418
